FAERS Safety Report 7820338-5 (Version None)
Quarter: 2011Q4

REPORT INFORMATION
  Report Type: 
  Country: None (occurrence: None)
  Receive Date: 20111013
  Receipt Date: 20110810
  Transmission Date: 20120403
  Serious: Yes (Other)
  Sender: FDA-Public Use
  Company Number: TPA2011A03333

PATIENT
  Age: 57 Year
  Sex: Male
  Weight: 99.7006 kg

DRUGS (5)
  1. LEVEMIR (INSULIN DETERMIR) [Concomitant]
  2. SYMILIN (DRUG USED IN DIABETES) [Concomitant]
  3. LOVASTATIN [Concomitant]
  4. LISINOPRIL [Concomitant]
  5. ACTOS [Suspect]
     Indication: DIABETES MELLITUS
     Dosage: 45 MG, 1 IN 1 D, PER ORAL
     Route: 048
     Dates: start: 20080801, end: 20110201

REACTIONS (1)
  - BLADDER CANCER STAGE I, WITHOUT CANCER IN SITU [None]
